FAERS Safety Report 5751405-8 (Version None)
Quarter: 2008Q2

REPORT INFORMATION
  Report Type: 
  Country: None (occurrence: None)
  Receive Date: 20080527
  Receipt Date: 20080519
  Transmission Date: 20081010
  Serious: Yes (Hospitalization)
  Sender: FDA-Public Use
  Company Number: 2008SP003981

PATIENT
  Age: 69 Year
  Sex: Male
  Weight: 73.9363 kg

DRUGS (2)
  1. TEMODAR [Suspect]
     Indication: GLIOMA
     Dosage: 75 MG/M2;QD;PO
     Route: 048
     Dates: start: 20070601, end: 20070723
  2. BACTRIM [Suspect]
     Indication: PROPHYLAXIS
     Dosage: ;TIW;PO
     Route: 048
     Dates: start: 20070601, end: 20070723

REACTIONS (6)
  - ALANINE AMINOTRANSFERASE INCREASED [None]
  - ASPARTATE AMINOTRANSFERASE INCREASED [None]
  - BLOOD ALKALINE PHOSPHATASE INCREASED [None]
  - HEPATIC FAILURE [None]
  - JAUNDICE [None]
  - LIVER FUNCTION TEST ABNORMAL [None]
